FAERS Safety Report 24972761 (Version 6)
Quarter: 2025Q4

REPORT INFORMATION
  Report Type: Spontaneous
  Country: CA (occurrence: CA)
  Receive Date: 20250215
  Receipt Date: 20251018
  Transmission Date: 20260118
  Serious: Yes (Other)
  Sender: CELLTRION
  Company Number: CA-CELLTRION INC.-2023CA004391

PATIENT

DRUGS (26)
  1. TRUXIMA [Suspect]
     Active Substance: RITUXIMAB-ABBS
     Indication: Vasculitis
     Dosage: UNK
  2. TRUXIMA [Suspect]
     Active Substance: RITUXIMAB-ABBS
     Dosage: 694 MG/INFUSION#2
     Route: 042
     Dates: start: 20230214
  3. TRUXIMA [Suspect]
     Active Substance: RITUXIMAB-ABBS
     Dosage: 694 MG/INFUSION#4
     Route: 042
     Dates: start: 20230214
  4. TRUXIMA [Suspect]
     Active Substance: RITUXIMAB-ABBS
     Dosage: 701 MG/INFUSION#5
     Route: 042
     Dates: start: 20230214
  5. TRUXIMA [Suspect]
     Active Substance: RITUXIMAB-ABBS
     Dosage: 701 MG/INFUSION#5 (X3 VIALS)
     Route: 042
     Dates: start: 20230214
  6. TRUXIMA [Suspect]
     Active Substance: RITUXIMAB-ABBS
     Dosage: 701 MG/INFUSION#6
     Route: 042
     Dates: start: 20230214
  7. TRUXIMA [Suspect]
     Active Substance: RITUXIMAB-ABBS
     Dosage: 701 MG/INFUSION#6 (X2 VIALS)
     Route: 042
     Dates: start: 20230214
  8. TRUXIMA [Suspect]
     Active Substance: RITUXIMAB-ABBS
     Dosage: 701 MG/INFUSION#6
     Route: 042
     Dates: start: 20230214
  9. TRUXIMA [Suspect]
     Active Substance: RITUXIMAB-ABBS
     Dosage: 701 MG/INFUSION#7
     Route: 042
     Dates: start: 20230214
  10. TRUXIMA [Suspect]
     Active Substance: RITUXIMAB-ABBS
     Dosage: 701 MG/INFUSION#7 (X3 VIALS)
     Route: 042
     Dates: start: 20230214
  11. TRUXIMA [Suspect]
     Active Substance: RITUXIMAB-ABBS
     Dosage: 701 MG/INFUSION#8
     Route: 042
     Dates: start: 20230214
  12. TRUXIMA [Suspect]
     Active Substance: RITUXIMAB-ABBS
     Dosage: 701 MG/INFUSION#8 (X2 VIALS)
     Route: 042
     Dates: start: 20230214
  13. TRUXIMA [Suspect]
     Active Substance: RITUXIMAB-ABBS
     Dosage: 701 MG/INFUSION#8
     Route: 042
     Dates: start: 20230214
  14. TRUXIMA [Suspect]
     Active Substance: RITUXIMAB-ABBS
     Dosage: 701 MG/INFUSION#6
     Route: 042
     Dates: start: 20230214
  15. TRUXIMA [Suspect]
     Active Substance: RITUXIMAB-ABBS
     Dosage: 698 MG/INFUSION#9
     Route: 042
  16. TRUXIMA [Suspect]
     Active Substance: RITUXIMAB-ABBS
     Dosage: 700 MG, 3 WEEK COURSE
     Route: 042
     Dates: start: 20230214
  17. TRUXIMA [Suspect]
     Active Substance: RITUXIMAB-ABBS
     Dosage: 700 MG, 3 WEEK COURSE
     Route: 042
     Dates: start: 20230214
  18. TRUXIMA [Suspect]
     Active Substance: RITUXIMAB-ABBS
     Dosage: 700 MG, 3 WEEK COURSE
     Route: 042
     Dates: start: 20250304
  19. TRUXIMA [Suspect]
     Active Substance: RITUXIMAB-ABBS
     Dosage: 700 MG, 3 WEEK COURSE
     Route: 042
     Dates: start: 20230214
  20. TRUXIMA [Suspect]
     Active Substance: RITUXIMAB-ABBS
     Dosage: 720 MG DAY 1 AND 15
     Route: 042
     Dates: start: 20230214
  21. TRUXIMA [Suspect]
     Active Substance: RITUXIMAB-ABBS
     Dosage: 720 MG Q WEEKLY
     Route: 042
     Dates: start: 20230214
  22. TRUXIMA [Suspect]
     Active Substance: RITUXIMAB-ABBS
     Dosage: 720 MG Q WEEKLY
     Route: 042
     Dates: start: 20230214
  23. DIPHENHYDRAMINE [Concomitant]
     Active Substance: DIPHENHYDRAMINE
     Indication: Premedication
     Dosage: 50 MILLIGRAM
     Route: 048
  24. ACETAMINOPHEN [Concomitant]
     Active Substance: ACETAMINOPHEN
     Indication: Premedication
     Dosage: 650 MILLIGRAM
     Route: 048
  25. METHYLPREDNISOLONE [Concomitant]
     Active Substance: METHYLPREDNISOLONE
     Indication: Premedication
     Dosage: 100 MILLIGRAM
     Route: 042
  26. ADVIL [Concomitant]
     Active Substance: IBUPROFEN

REACTIONS (15)
  - Cutaneous vasculitis [Recovering/Resolving]
  - Urethral disorder [Unknown]
  - Feeling cold [Recovered/Resolved]
  - Abdominal pain upper [Recovered/Resolved]
  - Extravasation [Unknown]
  - General symptom [Unknown]
  - Infusion site bruising [Not Recovered/Not Resolved]
  - Bladder discomfort [Unknown]
  - Flushing [Recovered/Resolved]
  - Muscle spasms [Recovered/Resolved]
  - Diarrhoea [Recovered/Resolved]
  - Urinary tract infection [Recovered/Resolved]
  - Hypertension [Unknown]
  - Off label use [Unknown]
  - Product use issue [Unknown]

NARRATIVE: CASE EVENT DATE: 20230215
